FAERS Safety Report 4659298-7 (Version None)
Quarter: 2005Q2

REPORT INFORMATION
  Report Type: 
  Country: None (occurrence: None)
  Receive Date: 20050510
  Receipt Date: 20050426
  Transmission Date: 20051028
  Serious: Yes (Other)
  Sender: FDA-Public Use
  Company Number: B0379913A

PATIENT
  Age: 37 Year
  Sex: Male

DRUGS (3)
  1. AGENERASE [Suspect]
  2. NELFINAVIR MESYLATE (NELFINAVIR MESYLATE) [Suspect]
  3. CO-PHENOTROPE [Concomitant]

REACTIONS (2)
  - BRADYCARDIA [None]
  - ELECTROCARDIOGRAM QT PROLONGED [None]
